FAERS Safety Report 6474941-8 (Version None)
Quarter: 2009Q4

REPORT INFORMATION
  Report Type: 
  Country: None (occurrence: None)
  Receive Date: 20091204
  Receipt Date: 20091124
  Transmission Date: 20100525
  Serious: Yes (Other)
  Sender: FDA-Public Use
  Company Number: BR-ABBOTT-09P-020-0558578-00

PATIENT
  Age: 30 Year
  Sex: Female

DRUGS (3)
  1. SIBUTRAMINE [Suspect]
     Indication: WEIGHT DECREASED
     Route: 048
     Dates: start: 20081101, end: 20090120
  2. MULTI-VITAMINS [Concomitant]
     Indication: VITAMIN SUPPLEMENTATION
  3. FISH OIL [Concomitant]
     Indication: SUPPLEMENTATION THERAPY

REACTIONS (2)
  - OLIGOHYDRAMNIOS [None]
  - VAGINAL HAEMORRHAGE [None]
